FAERS Safety Report 7392704-6 (Version None)
Quarter: 2011Q2

REPORT INFORMATION
  Report Type: 
  Country: None (occurrence: None)
  Receive Date: 20110404
  Receipt Date: 20110330
  Transmission Date: 20111010
  Serious: Yes (Death, Other)
  Sender: FDA-Public Use
  Company Number: JP-PFIZER INC-2011031662

PATIENT
  Age: 72 Year
  Sex: Female

DRUGS (14)
  1. MEROPEN [Suspect]
     Indication: PNEUMONIA STAPHYLOCOCCAL
     Dosage: 1 G, 3X/DAY
     Route: 042
     Dates: start: 20110209, end: 20110217
  2. ZYVOX [Suspect]
     Indication: PNEUMONIA STAPHYLOCOCCAL
     Dosage: 600 MG, 2X/DAY
     Route: 041
     Dates: start: 20110209, end: 20110217
  3. ZOSYN [Suspect]
     Indication: PNEUMONIA
  4. VANCOMYCIN [Suspect]
     Indication: DEVICE RELATED INFECTION
  5. RAPIACTA [Suspect]
     Indication: H1N1 INFLUENZA
     Dosage: 300 MG, 1X/DAY
     Route: 041
     Dates: start: 20110131, end: 20110204
  6. ELASPOL [Concomitant]
     Dosage: UNK
     Route: 042
     Dates: start: 20110201, end: 20110217
  7. VANCOMYCIN [Suspect]
     Indication: PNEUMONIA
     Dosage: UNK
     Route: 042
     Dates: start: 20110207, end: 20110209
  8. ZOSYN [Suspect]
     Indication: DEVICE RELATED INFECTION
     Dosage: UNK
     Route: 042
     Dates: start: 20110207, end: 20110209
  9. CIPROFLOXACIN HCL [Suspect]
     Indication: PNEUMONIA
     Dosage: 300 MG, 2X/DAY
     Route: 042
     Dates: start: 20110131, end: 20110207
  10. BACTRIM [Concomitant]
     Dosage: 2 DF, 1X/DAY
     Route: 042
     Dates: start: 20110131, end: 20110202
  11. BACTRIM [Concomitant]
     Dosage: 1 DF, 1X/DAY
     Route: 042
     Dates: start: 20110203, end: 20110217
  12. ROCEPHIN [Suspect]
     Indication: PNEUMONIA
     Dosage: 1 G, 1X/DAY
     Route: 042
     Dates: start: 20110131, end: 20110207
  13. LASIX [Concomitant]
     Dosage: 20 MG, 1X/DAY
     Route: 042
     Dates: start: 20110201, end: 20110217
  14. HANP [Concomitant]
     Dosage: UNK %, UNK
     Route: 042
     Dates: start: 20110202, end: 20110209

REACTIONS (3)
  - GASTROINTESTINAL PERFORATION [None]
  - BLOOD SODIUM DECREASED [None]
  - BLOOD POTASSIUM INCREASED [None]
